FAERS Safety Report 7545999-X (Version None)
Quarter: 2011Q2

REPORT INFORMATION
  Report Type: 
  Country: None (occurrence: None)
  Receive Date: 20110614
  Receipt Date: 20110601
  Transmission Date: 20111010
  Serious: Yes (Hospitalization)
  Sender: FDA-Public Use
  Company Number: PHHY2010GB21739

PATIENT
  Sex: Male

DRUGS (3)
  1. CLOZAPINE [Suspect]
     Dosage: UNK
     Route: 048
     Dates: start: 20100723
  2. CLOZAPINE [Suspect]
     Indication: SCHIZOPHRENIA
     Dosage: 500 MG,DAILY
     Route: 065
     Dates: start: 20091224
  3. CANNABIS [Suspect]

REACTIONS (3)
  - VOMITING [None]
  - CONVULSION [None]
  - DRUG ABUSE [None]
